FAERS Safety Report 13708638 (Version 2)
Quarter: 2017Q3

REPORT INFORMATION
  Report Type: Report from Study
  Country: US (occurrence: US)
  Receive Date: 20170630
  Receipt Date: 20170724
  Transmission Date: 20171127
  Serious: Yes (Hospitalization)
  Sender: FDA-Public Use
  Company Number: US-ACTELION-A-NJ2017-155870

PATIENT
  Age: 9 Year
  Sex: Male
  Weight: 28.5 kg

DRUGS (18)
  1. LEVETIRACETAM. [Concomitant]
     Active Substance: LEVETIRACETAM
     Dosage: 500 MG, QD
     Route: 048
  2. TOBRAMYCIN. [Concomitant]
     Active Substance: TOBRAMYCIN
     Dosage: 2 ML, QD
  3. ONDANSETRON [Concomitant]
     Active Substance: ONDANSETRON
     Dosage: 4 MG, Q6HRS
  4. ACETAMINOPHEN. [Concomitant]
     Active Substance: ACETAMINOPHEN
     Dosage: 500 MG, Q6HRS
     Route: 048
  5. ARANESP [Concomitant]
     Active Substance: DARBEPOETIN ALFA
  6. CALCITRIOL. [Concomitant]
     Active Substance: CALCITRIOL
     Dosage: UNK, QD
     Route: 048
  7. TRACLEER [Suspect]
     Active Substance: BOSENTAN
     Indication: HYPERTENSION
     Dosage: 31.25 MG, BID
     Route: 048
     Dates: start: 201612
  8. HEPARIN [Concomitant]
     Active Substance: HEPARIN SODIUM
     Dosage: 500 U, QD
  9. POLYSTYRENE SULFONATE CA [Concomitant]
     Dosage: 15 G, QD
     Route: 048
  10. SODIUM BICARBONATE. [Concomitant]
     Active Substance: SODIUM BICARBONATE
     Dosage: 650 MG, BID
  11. ALBUTEROL. [Concomitant]
     Active Substance: ALBUTEROL
     Dosage: 4 PUFF, BID
  12. CANDESARTAN. [Concomitant]
     Active Substance: CANDESARTAN
     Dosage: 16 MG, TID
  13. ISRADIPINE. [Concomitant]
     Active Substance: ISRADIPINE
     Dosage: 5 MG, QID
  14. CEFAZOLIN [Concomitant]
     Active Substance: CEFAZOLIN
     Dosage: UNK, QD
  15. TAMIFLU [Concomitant]
     Active Substance: OSELTAMIVIR PHOSPHATE
  16. FUROSEMIDE. [Concomitant]
     Active Substance: FUROSEMIDE
     Dosage: 40 MG, BID
     Route: 042
  17. SEVELAMER [Concomitant]
     Active Substance: SEVELAMER
     Dosage: 2400 MG, UNK
  18. MORPHINE [Concomitant]
     Active Substance: MORPHINE
     Dosage: 1 MG, Q4HRS

REACTIONS (14)
  - Influenza B virus test positive [Unknown]
  - Cough [Unknown]
  - Abdominal pain [Unknown]
  - Hypertension [Unknown]
  - Device dislocation [Unknown]
  - Catheter site discharge [Unknown]
  - Device occlusion [Unknown]
  - Vomiting [Unknown]
  - Peritonitis [Unknown]
  - Pyrexia [Recovering/Resolving]
  - Abdominal distension [Unknown]
  - Abdominal tenderness [Unknown]
  - Appendicectomy [Unknown]
  - Nausea [Recovering/Resolving]
